FAERS Safety Report 8111368-7 (Version None)
Quarter: 2012Q1

REPORT INFORMATION
  Report Type: 
  Country: None (occurrence: None)
  Receive Date: 20120203
  Receipt Date: 20111012
  Transmission Date: 20120608
  Serious: No
  Sender: FDA-Public Use
  Company Number: US-GLAXOSMITHKLINE-A0948823A

PATIENT
  Age: 18 Year
  Sex: Male

DRUGS (4)
  1. SINGULAIR [Concomitant]
  2. LAMOTRIGINE [Suspect]
     Indication: CONVULSION
     Route: 048
  3. UNSPECIFIED MEDICATION [Concomitant]
     Indication: GASTROOESOPHAGEAL REFLUX DISEASE
  4. LORATADINE [Concomitant]

REACTIONS (1)
  - TIC [None]
